FAERS Safety Report 7364606-2 (Version None)
Quarter: 2011Q1

REPORT INFORMATION
  Report Type: 
  Country: None (occurrence: None)
  Receive Date: 20110321
  Receipt Date: 20110316
  Transmission Date: 20110831
  Serious: Yes (Death, Other)
  Sender: FDA-Public Use
  Company Number: JP-GENENTECH-313282

PATIENT
  Age: 61 Year
  Sex: Male

DRUGS (6)
  1. D-MANNITOL [Concomitant]
     Indication: PRODUCT USED FOR UNKNOWN INDICATION
     Dosage: UNK
     Route: 041
     Dates: start: 20101129, end: 20101129
  2. RADICUT [Concomitant]
     Indication: PRODUCT USED FOR UNKNOWN INDICATION
     Dosage: 60 MG, UNK
     Route: 041
     Dates: start: 20101129, end: 20101203
  3. VASODILATORS NOS [Concomitant]
     Indication: PRODUCT USED FOR UNKNOWN INDICATION
     Dosage: UNK
     Route: 051
     Dates: start: 20101129, end: 20101130
  4. GRTPA [Suspect]
     Indication: EMBOLIC STROKE
     Dosage: 34.8 ML, UNK
     Route: 042
     Dates: start: 20101129, end: 20101129
  5. INSULIN [Concomitant]
     Indication: PRODUCT USED FOR UNKNOWN INDICATION
     Dosage: UNK
     Route: 051
     Dates: start: 20101130, end: 20101204
  6. GLYCEOL [Concomitant]
     Indication: PRODUCT USED FOR UNKNOWN INDICATION
     Dosage: UNK
     Route: 041
     Dates: start: 20101129, end: 20101204

REACTIONS (2)
  - CEREBRAL INFARCTION [None]
  - HAEMORRHAGE INTRACRANIAL [None]
